FAERS Safety Report 16303420 (Version 2)
Quarter: 2019Q2

REPORT INFORMATION
  Report Type: Spontaneous
  Country: KR (occurrence: KR)
  Receive Date: 20190513
  Receipt Date: 20190604
  Transmission Date: 20190711
  Serious: Yes (Hospitalization)
  Sender: FDA-Public Use
  Company Number: KR-009507513-1905KOR004399

PATIENT
  Sex: Female

DRUGS (23)
  1. KEYTRUDA [Suspect]
     Active Substance: PEMBROLIZUMAB
     Dosage: QUANTITY: 2, DAYS: 1
     Dates: start: 20190523, end: 20190523
  2. YUHAN DEXAMETHASONE (DEXAMETHASONE) [Concomitant]
     Dosage: QUANTITY: 32, DAYS: 1
     Route: 048
     Dates: start: 20190430
  3. CARBOPLATIN. [Concomitant]
     Active Substance: CARBOPLATIN
     Dosage: QUANTITY: 1.4, DAYS: 1
     Dates: start: 20190430
  4. CODEINE PHOSPHATE [Concomitant]
     Active Substance: CODEINE PHOSPHATE
     Dosage: QUANTITY: 2 DAYS: 1
     Route: 048
     Dates: start: 20190429
  5. CODEINE PHOSPHATE [Concomitant]
     Active Substance: CODEINE PHOSPHATE
     Dosage: QUANTITY: 1, DAYS: 1
     Route: 048
     Dates: start: 20190430
  6. EMEND [Concomitant]
     Active Substance: APREPITANT
     Dosage: QUANTITY: 1, DAYS: 2
     Route: 048
     Dates: start: 20190430
  7. DEXTROSE. [Concomitant]
     Active Substance: DEXTROSE
     Dosage: 50 ML, QUANTITY:1, DAYS:1
     Dates: start: 20190430
  8. SODIUM CHLORIDE. [Concomitant]
     Active Substance: SODIUM CHLORIDE
     Dosage: 100 ML, QUANTITY:4, DAYS: 1
     Dates: start: 20190430
  9. KEYTRUDA [Suspect]
     Active Substance: PEMBROLIZUMAB
     Dosage: UNK, ONCE
     Dates: start: 20190409, end: 20190409
  10. KEYTRUDA [Suspect]
     Active Substance: PEMBROLIZUMAB
     Dosage: QUANTITY: 2, DAYS: 1
     Dates: start: 20190430, end: 20190430
  11. HERBEN [Concomitant]
     Active Substance: DILTIAZEM HYDROCHLORIDE
     Dosage: QUANTITY: 3 DAYS: 1
     Route: 048
     Dates: start: 20190429
  12. YUHAN DEXAMETHASONE (DEXAMETHASONE) [Concomitant]
     Dosage: QUANTITY: 8 DAYS: 1
     Route: 048
     Dates: start: 20190429
  13. ALIMTA [Concomitant]
     Active Substance: PEMETREXED DISODIUM
     Dosage: QUANTITY: 1.6, DAYS: 1
     Dates: start: 20190430
  14. NASERON [Concomitant]
     Dosage: QUANTITY: 1, DAYS: 1
     Dates: start: 20190430
  15. CALCIUM GLUCONATE. [Concomitant]
     Active Substance: CALCIUM GLUCONATE
     Dosage: QUANTITY: 1, DAYS: 1
     Dates: start: 20190430
  16. SODIUM CHLORIDE. [Concomitant]
     Active Substance: SODIUM CHLORIDE
     Dosage: 1000 ML, GUANTITY: 1, DAYS:1
     Dates: start: 20190428
  17. SUSPEN ER [Concomitant]
     Dosage: QUANTITY: 1, DAYS: 1
     Route: 048
     Dates: start: 20190430
  18. DEXTROSE. [Concomitant]
     Active Substance: DEXTROSE
     Dosage: 100 ML, QUANTITY:1, DAYS:1
     Dates: start: 20190430
  19. SODIUM CHLORIDE. [Concomitant]
     Active Substance: SODIUM CHLORIDE
     Dosage: 50 ML, QUANTITY:4, DAYS:1
     Dates: start: 20190430
  20. CODEINE PHOSPHATE [Concomitant]
     Active Substance: CODEINE PHOSPHATE
     Dosage: QUANTITY: 3, DAYS: 20
     Route: 048
     Dates: start: 20190430
  21. FOLIC ACID. [Concomitant]
     Active Substance: FOLIC ACID
     Dosage: QUANTITY: 1, DAYS: 21
     Route: 048
     Dates: start: 20190429, end: 20190430
  22. EMEND [Concomitant]
     Active Substance: APREPITANT
     Dosage: QUANTITY: 1, DAYS: 1
     Route: 048
     Dates: start: 20190430
  23. MACPERAN [Concomitant]
     Active Substance: METOCLOPRAMIDE HYDROCHLORIDE
     Dosage: QUANTITY: 6, DAYS: 5
     Route: 048
     Dates: start: 20190430

REACTIONS (2)
  - Inappropriate schedule of product administration [Unknown]
  - Adverse event [Unknown]

NARRATIVE: CASE EVENT DATE: 201904
